FAERS Safety Report 19759065 (Version 1)
Quarter: 2021Q3

REPORT INFORMATION
  Report Type: Spontaneous
  Country: DE (occurrence: DE)
  Receive Date: 20210827
  Receipt Date: 20210827
  Transmission Date: 20211014
  Serious: Yes (Death, Life-Threatening, Other)
  Sender: FDA-Public Use
  Company Number: DE-MYLANLABS-2021M1055334

PATIENT
  Age: 26 Year
  Sex: Male

DRUGS (4)
  1. ETOPOSIDE. [Suspect]
     Active Substance: ETOPOSIDE
     Indication: TESTIS CANCER
     Dosage: UNK, CYCLIC; 3 CYCLES
     Route: 065
     Dates: start: 1989
  2. BLEOMYCIN [Suspect]
     Active Substance: BLEOMYCIN SULFATE
     Indication: TESTIS CANCER
     Dosage: UNK, CYCLIC; 3 CYCLES
     Route: 065
     Dates: start: 1989
  3. PREDNISOLONE. [Suspect]
     Active Substance: PREDNISOLONE
     Indication: PROPHYLAXIS OF NAUSEA AND VOMITING
     Dosage: UNK
     Route: 065
  4. CISPLATIN. [Suspect]
     Active Substance: CISPLATIN
     Indication: TESTIS CANCER
     Dosage: UNK, CYCLIC; 3 CYCLES
     Dates: start: 1989

REACTIONS (3)
  - Simple partial seizures [Unknown]
  - Brain oedema [Fatal]
  - Cerebral infarction [Fatal]
